FAERS Safety Report 7723764-8 (Version None)
Quarter: 2011Q3

REPORT INFORMATION
  Report Type: 
  Country: None (occurrence: None)
  Receive Date: 20110826
  Receipt Date: 20060224
  Transmission Date: 20111222
  Serious: No
  Sender: FDA-Public Use
  Company Number: 2006-P1089-001

PATIENT
  Age: 13 Month
  Sex: Male

DRUGS (2)
  1. CHLORAPREP [Suspect]
     Indication: PREOPERATIVE CARE
     Dosage: 0.67ML, ONCE, TOPICAL
     Route: 061
     Dates: start: 20060223
  2. CHLORAPREP [Suspect]
     Indication: THERAPEUTIC SKIN CARE TOPICAL
     Dosage: 0.67ML, ONCE, TOPICAL
     Route: 061
     Dates: start: 20060223

REACTIONS (3)
  - LACERATION [None]
  - DEVICE BREAKAGE [None]
  - SKIN HAEMORRHAGE [None]
